FAERS Safety Report 11810593 (Version 1)
Quarter: 2015Q4

REPORT INFORMATION
  Report Type: Report from Study
  Country: ES (occurrence: ES)
  Receive Date: 20151208
  Receipt Date: 20151208
  Transmission Date: 20160305
  Serious: Yes (Hospitalization)
  Sender: FDA-Public Use
  Company Number: ES-ALEXION PHARMACEUTICALS INC.-A201504764

PATIENT
  Age: 59 Year
  Sex: Male
  Weight: 66 kg

DRUGS (2)
  1. ECULIZUMAB [Suspect]
     Active Substance: ECULIZUMAB
     Indication: DELAYED GRAFT FUNCTION
     Route: 042
     Dates: start: 20151031
  2. ECULIZUMAB [Suspect]
     Active Substance: ECULIZUMAB
     Route: 042
     Dates: start: 20151101

REACTIONS (1)
  - Lymphorrhoea [Recovered/Resolved with Sequelae]

NARRATIVE: CASE EVENT DATE: 20151115
